FAERS Safety Report 6042000-4 (Version None)
Quarter: 2009Q1

REPORT INFORMATION
  Report Type: 
  Country: None (occurrence: None)
  Receive Date: 20090116
  Receipt Date: 20090109
  Transmission Date: 20090719
  Serious: Yes (Other)
  Sender: FDA-Public Use
  Company Number: JP-MERCK-0812USA02072

PATIENT
  Age: 57 Year
  Sex: Female

DRUGS (7)
  1. FOSAMAX [Suspect]
     Indication: OSTEOPOROSIS
     Route: 048
     Dates: start: 20071101, end: 20080201
  2. ZOMETA [Suspect]
     Indication: MULTIPLE MYELOMA
     Route: 065
     Dates: start: 20030101, end: 20070501
  3. MELPHALAN [Suspect]
     Route: 065
     Dates: start: 20030101
  4. PREDNISOLONE [Suspect]
     Route: 065
     Dates: start: 20030101
  5. MYSLEE [Suspect]
     Route: 065
     Dates: start: 20030101
  6. THALIDOMIDE [Suspect]
     Route: 065
     Dates: start: 20030101
  7. LORAZEPAM [Suspect]
     Route: 065
     Dates: start: 20030101

REACTIONS (2)
  - OSTEOMYELITIS [None]
  - OSTEONECROSIS [None]
